FAERS Safety Report 8470536-5 (Version None)
Quarter: 2012Q2

REPORT INFORMATION
  Report Type: 
  Country: None (occurrence: None)
  Receive Date: 20120323
  Receipt Date: 20111213
  Transmission Date: 20120825
  Serious: Yes (Other)
  Sender: FDA-Public Use
  Company Number: 163-21880-11101365

PATIENT
  Age: 75 Year
  Sex: Female
  Weight: 47.1741 kg

DRUGS (8)
  1. THYROID TAB [Concomitant]
  2. ACYCLOVIR [Concomitant]
  3. CALCIUM CARBONATE [Concomitant]
  4. FISH OIL (FISH OIL) [Concomitant]
  5. HYDROCODONE BITARTRATE [Concomitant]
  6. ASPIRIN [Concomitant]
  7. MIRALAX [Concomitant]
  8. REVLIMID [Suspect]
     Indication: MULTIPLE MYELOMA
     Dosage: 5 MG, 1 IN 1 D, PO
     Route: 048
     Dates: start: 20110901, end: 20111001

REACTIONS (1)
  - DEEP VEIN THROMBOSIS [None]
